FAERS Safety Report 8828586 (Version 5)
Quarter: 2013Q2

REPORT INFORMATION
  Report Type: Report from Study
  Country: CA (occurrence: CA)
  Receive Date: 20121005
  Receipt Date: 20130517
  Transmission Date: 20140414
  Serious: Yes (Hospitalization)
  Sender: FDA-Public Use
  Company Number: CA-AMGEN-CANCT2012062279

PATIENT
  Age: 68 Year
  Sex: Male

DRUGS (8)
  1. DENOSUMAB [Suspect]
     Indication: HORMONE-REFRACTORY PROSTATE CANCER
     Dosage: 2 ML, QMO
     Route: 058
     Dates: start: 20110113
  2. ZOLADEX [Concomitant]
     Indication: HORMONE-REFRACTORY PROSTATE CANCER
     Dosage: 28 MG, Q3MO
     Route: 030
     Dates: start: 1998
  3. HYZAAR [Concomitant]
     Dosage: UNK UNK, QD
     Route: 048
  4. CALCIUM CARBONATE W/VITAMIN D NOS [Concomitant]
     Dosage: UNK UNK, QD
     Route: 048
  5. ASPIRIN [Concomitant]
     Dosage: 81 MG, QD
     Route: 048
  6. MULTIVITAMINS [Concomitant]
     Dosage: UNK UNK, QD
     Route: 048
  7. TYLENOL ARTHRITIS [Concomitant]
  8. CRESTOR [Concomitant]
     Dosage: 5 MG, UNK

REACTIONS (1)
  - Fracture nonunion [Recovered/Resolved]
